FAERS Safety Report 15695759 (Version 1)
Quarter: 2018Q4

REPORT INFORMATION
  Report Type: Spontaneous
  Country: IT (occurrence: IT)
  Receive Date: 20181206
  Receipt Date: 20181206
  Transmission Date: 20190205
  Serious: Yes (Other)
  Sender: FDA-Public Use
  Company Number: IT-TEVA-2018-IT-982166

PATIENT
  Age: 32 Year
  Sex: Female

DRUGS (10)
  1. CYCLOPHOSPHAMIDE. [Suspect]
     Active Substance: CYCLOPHOSPHAMIDE
     Route: 065
     Dates: start: 20050701, end: 20060101
  2. METHOTREXATE. [Suspect]
     Active Substance: METHOTREXATE
     Route: 065
     Dates: start: 20050701, end: 20060101
  3. VINCRISTINA [Suspect]
     Active Substance: VINCRISTINE
     Route: 065
     Dates: start: 20050701, end: 20060101
  4. ETOPOSIDE. [Suspect]
     Active Substance: ETOPOSIDE
     Indication: NON-HODGKIN^S LYMPHOMA
     Route: 065
     Dates: start: 20050701, end: 20060101
  5. BACTRIM [Concomitant]
     Active Substance: SULFAMETHOXAZOLE\TRIMETHOPRIM
     Route: 048
     Dates: start: 20050715, end: 20060116
  6. PREDNISONE. [Concomitant]
     Active Substance: PREDNISONE
     Dates: start: 20050715, end: 20060116
  7. ZANTAC [Concomitant]
     Active Substance: RANITIDINE HYDROCHLORIDE
     Dates: start: 20050715, end: 20060116
  8. CYTARABINE. [Suspect]
     Active Substance: CYTARABINE
     Route: 065
     Dates: start: 20050701, end: 20060101
  9. LEDERFOLIN [Concomitant]
     Active Substance: LEUCOVORIN CALCIUM
  10. MITOXANTRONE [Suspect]
     Active Substance: MITOXANTRONE HYDROCHLORIDE
     Route: 065
     Dates: start: 20050701, end: 20060101

REACTIONS (2)
  - Tachycardia [Recovered/Resolved with Sequelae]
  - Asthenia [Recovered/Resolved with Sequelae]

NARRATIVE: CASE EVENT DATE: 20060116
